FAERS Safety Report 5005784-X (Version None)
Quarter: 2006Q2

REPORT INFORMATION
  Report Type: 
  Country: None (occurrence: None)
  Receive Date: 20060515
  Receipt Date: 20060503
  Transmission Date: 20061013
  Serious: Yes (Other)
  Sender: FDA-Public Use
  Company Number: Q06-024

PATIENT
  Sex: Male
  Weight: 90.039 kg

DRUGS (17)
  1. VELCADE [Suspect]
     Indication: MULTIPLE MYELOMA
     Dosage: 1.3 MG/M2 = 2. MG
     Dates: start: 20060418
  2. VELCADE [Suspect]
     Indication: MULTIPLE MYELOMA
     Dosage: 1.3 MG/M2 = 2. MG
     Dates: start: 20060421
  3. VELCADE [Suspect]
     Indication: MULTIPLE MYELOMA
     Dosage: 1.3 MG/M2 = 2. MG
     Dates: start: 20060425
  4. VELCADE [Suspect]
     Indication: MULTIPLE MYELOMA
     Dosage: 1.3 MG/M2 = 2. MG
     Dates: start: 20060428
  5. SAMARIUM [Suspect]
     Indication: MULTIPLE MYELOMA
     Dosage: 0.25 MCI / KG = 23.9
     Dates: start: 20060420
  6. PROCRIT [Concomitant]
  7. PRAVACHOL [Concomitant]
  8. WARFARIN SODIUM [Concomitant]
  9. VFEND [Concomitant]
  10. LEVOTHROID [Concomitant]
  11. CENTRUM [Concomitant]
  12. TRIPLE FLEX [Concomitant]
  13. GLUCOSAMINE [Concomitant]
  14. TYLENOL W/ CODEINE NO. 3 [Concomitant]
  15. TYLENOL (CAPLET) [Concomitant]
  16. ASCORBIC ACID [Concomitant]
  17. ZOMETA [Concomitant]

REACTIONS (1)
  - THROMBOCYTOPENIA [None]
